FAERS Safety Report 4897029-6 (Version None)
Quarter: 2006Q1

REPORT INFORMATION
  Report Type: 
  Country: None (occurrence: None)
  Receive Date: 20060127
  Receipt Date: 20060111
  Transmission Date: 20060701
  Serious: Yes (Death)
  Sender: FDA-Public Use
  Company Number: 2006009400

PATIENT
  Age: 74 Year
  Sex: Male

DRUGS (5)
  1. MIGLITOL TABLET (MIGLITOL) [Suspect]
     Indication: DIABETES MELLITUS
     Dosage: 150 MG (UNKNOWN), ORAL
     Route: 048
     Dates: start: 20051221
  2. AMARYL [Concomitant]
  3. LOCHOL (FLUVASTATIN SODIUM) [Concomitant]
  4. ISOSORBIDE MONONITRATE [Concomitant]
  5. METHYCOBAL (MECOBALAMIN) [Concomitant]

REACTIONS (2)
  - BLOOD PRESSURE DIASTOLIC DECREASED [None]
  - PNEUMONIA [None]
